FAERS Safety Report 13445906 (Version 3)
Quarter: 2017Q3

REPORT INFORMATION
  Report Type: Spontaneous
  Country: US (occurrence: US)
  Receive Date: 20170417
  Receipt Date: 20170703
  Transmission Date: 20171127
  Serious: Yes (Other)
  Sender: FDA-Public Use
  Company Number: US-AUROBINDO-AUR-APL-2017-32509

PATIENT
  Age: 62 Year
  Sex: Male

DRUGS (2)
  1. VANCOMYCIN [Concomitant]
     Active Substance: VANCOMYCIN
     Indication: PRODUCT USED FOR UNKNOWN INDICATION
     Route: 065
  2. ACICLOVIR [Suspect]
     Active Substance: ACYCLOVIR
     Indication: HERPES ZOSTER DISSEMINATED
     Dosage: 12.1 MG/KG, EVERY 12 HOURS
     Route: 042

REACTIONS (16)
  - Somnolence [Recovered/Resolved]
  - Hydronephrosis [Recovering/Resolving]
  - Flat affect [Recovering/Resolving]
  - Skin lesion [Unknown]
  - Hallucination, visual [Recovering/Resolving]
  - Hypovolaemia [Unknown]
  - Asterixis [Unknown]
  - Erythema [Recovered/Resolved]
  - Disorientation [Recovered/Resolved]
  - Renal impairment [Recovering/Resolving]
  - Unresponsive to stimuli [Recovering/Resolving]
  - Neurotoxicity [Recovering/Resolving]
  - Confusional state [Recovered/Resolved]
  - Mental status changes [Recovered/Resolved]
  - Proteinuria [Recovering/Resolving]
  - Hyporesponsive to stimuli [Recovering/Resolving]
